FAERS Safety Report 15619084 (Version 4)
Quarter: 2019Q1

REPORT INFORMATION
  Report Type: Report from Study
  Country: TW (occurrence: TW)
  Receive Date: 20181114
  Receipt Date: 20190306
  Transmission Date: 20190417
  Serious: Yes (Hospitalization, Other)
  Sender: FDA-Public Use
  Company Number: TW-SA-2018SA305919

PATIENT
  Age: 48 Year
  Sex: Male

DRUGS (1)
  1. AGALSIDASE BETA [Suspect]
     Active Substance: AGALSIDASE BETA
     Indication: FABRY^S DISEASE
     Dosage: 70 MG, QOW
     Route: 041
     Dates: start: 20150817

REACTIONS (9)
  - Fatigue [Recovered/Resolved]
  - Cervical spinal stenosis [Recovered/Resolved]
  - Cerebrovascular accident [Recovered/Resolved]
  - Disease progression [Not Recovered/Not Resolved]
  - Cerebral infarction [Recovered/Resolved]
  - Muscular weakness [Recovered/Resolved]
  - Bradycardia [Not Recovered/Not Resolved]
  - Discomfort [Recovered/Resolved]
  - Hypoaesthesia [Recovered/Resolved]

NARRATIVE: CASE EVENT DATE: 2018
